FAERS Safety Report 18935000 (Version 1)
Quarter: 2021Q1

REPORT INFORMATION
  Report Type: Spontaneous
  Country: US (occurrence: US)
  Receive Date: 20210224
  Receipt Date: 20210224
  Transmission Date: 20210420
  Serious: No
  Sender: FDA-Public Use
  Company Number: US-BAYER-2021-079603

PATIENT

DRUGS (1)
  1. MIRALAX [Suspect]
     Active Substance: POLYETHYLENE GLYCOL 3350
     Indication: ABDOMINAL OPERATION
     Dosage: 238 GRAM BOTTLE OF MIRALAX LAXATIVE. MIXED WITH GATORADE.

REACTIONS (2)
  - Product use in unapproved indication [Unknown]
  - Wrong technique in product usage process [None]
